APPROVED DRUG PRODUCT: BLOCADREN
Active Ingredient: TIMOLOL MALEATE
Strength: 10MG **Federal Register determination that product was not discontinued or withdrawn for safety or effectiveness reasons**
Dosage Form/Route: TABLET;ORAL
Application: N018017 | Product #002
Applicant: MERCK RESEARCH LABORATORIES DIV MERCK CO INC
Approved: Approved Prior to Jan 1, 1982 | RLD: Yes | RS: No | Type: DISCN